FAERS Safety Report 21069531 (Version 3)
Quarter: 2024Q3

REPORT INFORMATION
  Report Type: Spontaneous
  Country: US (occurrence: US)
  Receive Date: 20220712
  Receipt Date: 20240722
  Transmission Date: 20241017
  Serious: No
  Sender: ASTELLAS
  Company Number: US-ASTELLAS-2022US001403

PATIENT
  Sex: Female

DRUGS (7)
  1. MYRBETRIQ [Suspect]
     Active Substance: MIRABEGRON
     Indication: Arthritis
     Route: 048
     Dates: start: 2022
  2. MYRBETRIQ [Suspect]
     Active Substance: MIRABEGRON
     Indication: Gait disturbance
     Dosage: 50 MG, ONCE DAILY (25MG 2 TABLETS DAILY)
     Route: 048
  3. MYRBETRIQ [Suspect]
     Active Substance: MIRABEGRON
     Indication: Micturition urgency
     Route: 048
  4. MYRBETRIQ [Suspect]
     Active Substance: MIRABEGRON
     Indication: Arthritis
     Route: 048
  5. MYRBETRIQ [Suspect]
     Active Substance: MIRABEGRON
     Indication: Gait disturbance
     Route: 048
  6. MYRBETRIQ [Suspect]
     Active Substance: MIRABEGRON
     Indication: Micturition urgency
     Route: 048
  7. MELOXICAM [Concomitant]
     Active Substance: MELOXICAM
     Indication: Product used for unknown indication
     Dosage: UNK UNK, UNKNOWN FREQ. (1/2 A TABLET)
     Route: 065

REACTIONS (3)
  - Micturition urgency [Unknown]
  - Condition aggravated [Unknown]
  - Off label use [Unknown]

NARRATIVE: CASE EVENT DATE: 20220101
